FAERS Safety Report 4682179-X (Version None)
Quarter: 2005Q2

REPORT INFORMATION
  Report Type: 
  Country: None (occurrence: None)
  Receive Date: 20050603
  Receipt Date: 20050603
  Transmission Date: 20051028
  Serious: No
  Sender: FDA-Public Use
  Company Number: None

PATIENT
  Sex: Male
  Weight: 78.3 kg

DRUGS (5)
  1. PACLITAXEL [Suspect]
     Indication: NON-SMALL CELL LUNG CANCER
     Dosage: 200 MG/M2 IV OVER 1 HR ON DAYS 1 AND 22
     Route: 042
     Dates: start: 20050509
  2. CARBOPLATIN [Suspect]
     Dosage: AUC 6 IV OVER 30 MIN ON DAYS 1 AND 22
     Route: 042
  3. PACLITAXEL [Suspect]
     Dosage: 50 MG/M2 IV OVER 1 HR ON DAYS 43, 50, 57, 64, 71 AND 85
     Route: 042
  4. CARBOPLATIN [Suspect]
     Dosage: ACU 2 IV OVER 30 MIN ON DAYS 43, 50, 57, 64, 71 AND 85
     Route: 042
  5. RADIOTHERAPY [Suspect]
     Dosage: 6600 CGY TOTAL DOSE, GIVEN AS 5 FRACTIONS/WEEK BEGINNING ON DAY 43

REACTIONS (20)
  - ACTIVATED PARTIAL THROMBOPLASTIN TIME SHORTENED [None]
  - ANXIETY [None]
  - ARTERIOGRAM CORONARY ABNORMAL [None]
  - ASPARTATE AMINOTRANSFERASE INCREASED [None]
  - BLOOD FIBRINOGEN INCREASED [None]
  - CARDIAC DISORDER [None]
  - CARDIAC FAILURE CONGESTIVE [None]
  - CARDIO-RESPIRATORY ARREST [None]
  - CHEST DISCOMFORT [None]
  - CHEST PAIN [None]
  - ELECTROCARDIOGRAM ST SEGMENT ABNORMAL [None]
  - FEBRILE NEUTROPENIA [None]
  - FIBRIN DEGRADATION PRODUCTS INCREASED [None]
  - HYPERKALAEMIA [None]
  - PROTHROMBIN TIME SHORTENED [None]
  - RENAL FAILURE [None]
  - RESPIRATORY DISTRESS [None]
  - SINUS ARRHYTHMIA [None]
  - TROPONIN INCREASED [None]
  - URINARY TRACT INFECTION STAPHYLOCOCCAL [None]
